FAERS Safety Report 16826171 (Version 1)
Quarter: 2019Q3

REPORT INFORMATION
  Report Type: Spontaneous
  Country: US (occurrence: US)
  Receive Date: 20190919
  Receipt Date: 20190919
  Transmission Date: 20191005
  Serious: No
  Sender: FDA-Public Use
  Company Number: US-AUROBINDO-AUR-APU-2018-053761

PATIENT
  Sex: Male
  Weight: 68 kg

DRUGS (2)
  1. ALPRAZOLAM TABLETS USP 1MG [Suspect]
     Active Substance: ALPRAZOLAM
     Indication: ANXIETY
     Dosage: 1 UNK, THREE TIMES A DAY
     Route: 065
  2. ALPRAZOLAM TABLETS USP 1MG [Suspect]
     Active Substance: ALPRAZOLAM
     Indication: TENSION
     Dosage: 0.5 MILLIGRAM, FOUR TIMES A DAY

REACTIONS (2)
  - Ligament sprain [Unknown]
  - Drug ineffective [Unknown]
